FAERS Safety Report 5824520-8 (Version None)
Quarter: 2008Q3

REPORT INFORMATION
  Report Type: 
  Country: None (occurrence: None)
  Receive Date: 20080728
  Receipt Date: 20080721
  Transmission Date: 20090109
  Serious: Yes (Death)
  Sender: FDA-Public Use
  Company Number: US-WYE-H04686108

PATIENT
  Sex: Male
  Weight: 81.72 kg

DRUGS (2)
  1. PRISTIQ [Suspect]
     Indication: MAJOR DEPRESSION
     Route: 048
     Dates: start: 20080527, end: 20080612
  2. RISPERDAL [Concomitant]
     Route: 048
     Dates: start: 20080501

REACTIONS (1)
  - COMPLETED SUICIDE [None]
